FAERS Safety Report 21803152 (Version 1)
Quarter: 2023Q1

REPORT INFORMATION
  Report Type: Report from Study
  Country: US (occurrence: US)
  Receive Date: 20230101
  Receipt Date: 20230101
  Transmission Date: 20230417
  Serious: No
  Sender: FDA-Public Use
  Company Number: US-ABBVIE-4207840

PATIENT
  Sex: Male

DRUGS (2)
  1. SKYRIZI [Suspect]
     Active Substance: RISANKIZUMAB-RZAA
     Indication: Product used for unknown indication
     Route: 058
     Dates: end: 2019
  2. SKYRIZI [Suspect]
     Active Substance: RISANKIZUMAB-RZAA
     Dosage: FIRST ADMIN DATE: 2022
     Route: 058

REACTIONS (3)
  - Psoriasis [Unknown]
  - Nausea [Recovered/Resolved with Sequelae]
  - Feeling abnormal [Recovered/Resolved with Sequelae]

NARRATIVE: CASE EVENT DATE: 20220101
